FAERS Safety Report 4270660-7 (Version None)
Quarter: 2004Q1

REPORT INFORMATION
  Report Type: 
  Country: None (occurrence: None)
  Receive Date: 20040114
  Receipt Date: 20031023
  Transmission Date: 20041129
  Serious: Yes (Other)
  Sender: FDA-Public Use
  Company Number: WAES 0310USA02847

PATIENT
  Age: 78 Year
  Sex: Female

DRUGS (19)
  1. [THERAPY UNSPECIFIED] [Concomitant]
     Dates: end: 20031011
  2. PLAS-AMINO [Concomitant]
     Dates: start: 20031012, end: 20031013
  3. ASCORBIC ACID [Concomitant]
     Dates: start: 20031015, end: 20031021
  4. LENDORMIN [Concomitant]
     Dates: end: 20031011
  5. DEXAMETHASONE [Concomitant]
     Dates: start: 20031016, end: 20031018
  6. DEXTROSE [Concomitant]
     Dates: start: 20031012, end: 20031015
  7. ELECTROLYTES (UNSPECIFIED) [Concomitant]
     Dates: start: 20031014, end: 20031014
  8. DIAZEPAM [Concomitant]
     Dates: end: 20031011
  9. PEPCID [Suspect]
     Route: 042
     Dates: start: 20031011, end: 20031011
  10. PEPCID [Suspect]
     Route: 042
     Dates: start: 20031012, end: 20031012
  11. SAXIZON [Concomitant]
     Dates: start: 20031011, end: 20031011
  12. LORAZEPAM [Concomitant]
     Dates: end: 20031011
  13. ADALAT [Concomitant]
     Dates: start: 20031015, end: 20031021
  14. PANTHENOL [Concomitant]
     Dates: start: 20031015, end: 20031021
  15. ASPARA K [Concomitant]
     Dates: start: 20031011, end: 20031011
  16. SODIUM BICARBONATE [Concomitant]
     Dates: start: 20031011, end: 20031011
  17. SODIUM CHLORIDE [Concomitant]
     Dates: start: 20031011, end: 20031021
  18. TRAZODONE HYDROCHLORIDE [Concomitant]
     Dates: end: 20031011
  19. VITAMEDIN [Concomitant]
     Dates: start: 20031012, end: 20031021

REACTIONS (1)
  - BLOOD CREATINE PHOSPHOKINASE INCREASED [None]
